FAERS Safety Report 4966439-0 (Version None)
Quarter: 2006Q1

REPORT INFORMATION
  Report Type: 
  Country: None (occurrence: None)
  Receive Date: 20060201
  Receipt Date: 20051129
  Transmission Date: 20060701
  Serious: No
  Sender: FDA-Public Use
  Company Number: 2005PV005009

PATIENT
  Age: 72 Year
  Sex: Male
  Weight: 98.8842 kg

DRUGS (7)
  1. BYETTA [Suspect]
     Indication: DIABETES MELLITUS NON-INSULIN-DEPENDENT
     Dosage: 5 MCG;BID;SC
     Route: 058
     Dates: start: 20051126
  2. GLUCOPHAGE [Concomitant]
  3. AVANDIA [Concomitant]
  4. LIPITOR [Concomitant]
  5. LOTREL [Concomitant]
  6. LEXAPRO [Concomitant]
  7. BC POWDER [Concomitant]

REACTIONS (4)
  - ASTHENIA [None]
  - FATIGUE [None]
  - HEADACHE [None]
  - INFLUENZA [None]
